FAERS Safety Report 8529320-6 (Version None)
Quarter: 2012Q3

REPORT INFORMATION
  Report Type: 
  Country: None (occurrence: None)
  Receive Date: 20120717
  Receipt Date: 20120717
  Transmission Date: 20120928
  Serious: No
  Sender: FDA-Public Use
  Company Number: None

PATIENT

DRUGS (2)
  1. CREST PRO-HEALTH CLINICAL CPC ANTIGINGIVITIS/ANTIPLAQUE ORAL RINSE [Suspect]
     Indication: CHEMICAL INJURY
     Dates: start: 20120630, end: 20120630
  2. CREST PRO-HEALTH CLINICAL CPC ANTIGINGIVITIS/ANTIPLAQUE ORAL RINSE [Suspect]
     Indication: CHEMICAL INJURY
     Dates: start: 20120629

REACTIONS (7)
  - CHEMICAL INJURY [None]
  - DYSGEUSIA [None]
  - GINGIVAL PAIN [None]
  - ILL-DEFINED DISORDER [None]
  - HYPOAESTHESIA ORAL [None]
  - ORAL DISCOMFORT [None]
  - ORAL MUCOSAL DISCOLOURATION [None]
